FAERS Safety Report 10367775 (Version 1)
Quarter: 2014Q3

REPORT INFORMATION
  Report Type: Spontaneous
  Country: ES (occurrence: ES)
  Receive Date: 20140807
  Receipt Date: 20140807
  Transmission Date: 20150326
  Serious: Yes (Death, Other)
  Sender: FDA-Public Use
  Company Number: ES-CUBIST PHARMACEUTICAL, INC.-2014CBST001127

PATIENT

DRUGS (13)
  1. IMIPENEM [Suspect]
     Active Substance: IMIPENEM
     Indication: DEVICE RELATED INFECTION
  2. FOSFOMYCIN [Suspect]
     Active Substance: FOSFOMYCIN
     Indication: NOSOCOMIAL INFECTION
     Dosage: 2 G, Q6H
     Route: 042
  3. FOSFOMYCIN [Suspect]
     Active Substance: FOSFOMYCIN
     Indication: ENDOCARDITIS STAPHYLOCOCCAL
  4. FOSFOMYCIN [Suspect]
     Active Substance: FOSFOMYCIN
     Indication: DEVICE RELATED INFECTION
  5. CUBICIN [Suspect]
     Active Substance: DAPTOMYCIN
     Indication: OFF LABEL USE
  6. CUBICIN [Suspect]
     Active Substance: DAPTOMYCIN
     Indication: NOSOCOMIAL INFECTION
     Dosage: 6-10 MG/KG, UNK, UNK
     Route: 065
  7. CUBICIN [Suspect]
     Active Substance: DAPTOMYCIN
     Indication: DEVICE RELATED INFECTION
  8. IMIPENEM [Suspect]
     Active Substance: IMIPENEM
     Indication: ENDOCARDITIS STAPHYLOCOCCAL
  9. IMIPENEM [Suspect]
     Active Substance: IMIPENEM
     Indication: MEDIASTINITIS
  10. CUBICIN [Suspect]
     Active Substance: DAPTOMYCIN
     Indication: MEDIASTINITIS
  11. FOSFOMYCIN [Suspect]
     Active Substance: FOSFOMYCIN
     Indication: MEDIASTINITIS
  12. IMIPENEM [Suspect]
     Active Substance: IMIPENEM
     Indication: NOSOCOMIAL INFECTION
     Dosage: 1 G, Q6H
     Route: 042
  13. CUBICIN [Suspect]
     Active Substance: DAPTOMYCIN
     Indication: ENDOCARDITIS STAPHYLOCOCCAL

REACTIONS (3)
  - Acute myocardial infarction [Unknown]
  - Atrioventricular block complete [Unknown]
  - Cardiac failure [Fatal]
